FAERS Safety Report 4627234-5 (Version None)
Quarter: 2005Q1

REPORT INFORMATION
  Report Type: 
  Country: None (occurrence: None)
  Receive Date: 20050331
  Receipt Date: 20050321
  Transmission Date: 20050727
  Serious: Yes (Other)
  Sender: FDA-Public Use
  Company Number: 200511157BCC

PATIENT
  Age: 89 Year
  Sex: Male
  Weight: 71.6683 kg

DRUGS (5)
  1. MILK OF MAGNESIA TAB [Suspect]
     Indication: CONSTIPATION
     Dosage: 4800 MG, QD, ORAL; 2400 MG, QD, ORAL
     Route: 048
  2. CARDIZEM [Concomitant]
  3. HYZAAR [Concomitant]
  4. ST. JOSEPH'S ASPIRIN [Concomitant]
  5. SYNTHROID [Concomitant]

REACTIONS (1)
  - DISORIENTATION [None]
